FAERS Safety Report 15904860 (Version 3)
Quarter: 2019Q1

REPORT INFORMATION
  Report Type: Report from Study
  Country: BR (occurrence: BR)
  Receive Date: 20190204
  Receipt Date: 20190306
  Transmission Date: 20190417
  Serious: Yes (Hospitalization, Other)
  Sender: FDA-Public Use
  Company Number: BR-SA-2019SA028677

PATIENT
  Age: 52 Year
  Sex: Female

DRUGS (1)
  1. AGALSIDASE BETA [Suspect]
     Active Substance: AGALSIDASE BETA
     Indication: FABRY^S DISEASE
     Dosage: 2 VIALS, Q15D
     Route: 041
     Dates: start: 20130309, end: 20181228

REACTIONS (6)
  - Device related infection [Unknown]
  - Platelet transfusion [Unknown]
  - Mood altered [Not Recovered/Not Resolved]
  - Transfusion [Unknown]
  - Thrombosis [Not Recovered/Not Resolved]
  - Pyrexia [Recovering/Resolving]

NARRATIVE: CASE EVENT DATE: 201901
